FAERS Safety Report 17673197 (Version 1)
Quarter: 2020Q2

REPORT INFORMATION
  Report Type: Spontaneous
  Country: IN (occurrence: IN)
  Receive Date: 20200416
  Receipt Date: 20200416
  Transmission Date: 20200713
  Serious: Yes (Hospitalization)
  Sender: FDA-Public Use
  Company Number: IN-SUN PHARMACEUTICAL INDUSTRIES LTD-2020R1-243612

PATIENT
  Age: 35 Year
  Sex: Female

DRUGS (3)
  1. ADRENALINE [Interacting]
     Active Substance: EPINEPHRINE
     Indication: PRODUCT USED FOR UNKNOWN INDICATION
     Dosage: UNK
     Route: 065
  2. DEXMEDETOMIDINE. [Suspect]
     Active Substance: DEXMEDETOMIDINE
     Indication: PRODUCT USED FOR UNKNOWN INDICATION
     Dosage: 24 MCG/HR
     Route: 042
  3. LIGNOCAINE [Interacting]
     Active Substance: LIDOCAINE HYDROCHLORIDE
     Indication: PRODUCT USED FOR UNKNOWN INDICATION
     Dosage: UNK
     Route: 065

REACTIONS (8)
  - Incorrect dose administered [Unknown]
  - Drug interaction [Unknown]
  - Blood pressure decreased [Recovering/Resolving]
  - Myocardial ischaemia [Recovering/Resolving]
  - Tachycardia [Recovering/Resolving]
  - Circulatory collapse [Recovering/Resolving]
  - Acute pulmonary oedema [Recovering/Resolving]
  - Blood pressure increased [Recovering/Resolving]
